FAERS Safety Report 7156119-8 (Version None)
Quarter: 2010Q4

REPORT INFORMATION
  Report Type: 
  Country: None (occurrence: None)
  Receive Date: 20101214
  Receipt Date: 20101203
  Transmission Date: 20110411
  Serious: Yes (Other)
  Sender: FDA-Public Use
  Company Number: US-AMGEN-USASP2010005516

PATIENT

DRUGS (15)
  1. ENBREL [Suspect]
     Indication: RHEUMATOID ARTHRITIS
     Dates: start: 20090101
  2. OYSTER SHELL CALCIUM WITH VITAMIN D/00944201/ [Concomitant]
     Dosage: UNK UNK, BID
     Route: 048
  3. CATAPRES                           /00171101/ [Concomitant]
     Dosage: 0.1 MG, BID
     Route: 048
  4. JANUVIA [Concomitant]
     Dosage: 50 MG, QD
     Route: 048
  5. BACTRIM DS [Concomitant]
     Dosage: UNK
     Route: 048
     Dates: start: 20100601
  6. LISINOPRIL [Concomitant]
     Dosage: 40 MG, QD
     Route: 048
  7. PREDNISONE [Concomitant]
     Dosage: 40 MG, QD
     Dates: start: 20100601
  8. MOTRIN [Concomitant]
     Dosage: 800 MG, PRN
  9. SINGULAIR [Concomitant]
     Dosage: 10 MG, QD
  10. VICODIN ES [Concomitant]
     Dosage: UNK UNK, PRN
  11. TOPROL-XL                          /00376902/ [Concomitant]
     Dosage: 100 MG, QD
  12. NORVASC [Concomitant]
     Dosage: 5 MG, QD
  13. TURMERIC [Concomitant]
  14. CLARITIN                           /00413701/ [Concomitant]
  15. FISH OIL [Concomitant]
     Dosage: 1000 MG, QD

REACTIONS (10)
  - CONDITION AGGRAVATED [None]
  - DYSPNOEA EXERTIONAL [None]
  - GLOMERULONEPHRITIS ACUTE [None]
  - MALIGNANT HYPERTENSION [None]
  - RENAL ARTERIOSCLEROSIS [None]
  - RENAL FAILURE ACUTE [None]
  - RENAL INJURY [None]
  - RHEUMATOID ARTHRITIS [None]
  - RHEUMATOID NODULE [None]
  - VASCULITIS [None]
